FAERS Safety Report 4558632-6 (Version None)
Quarter: 2005Q1

REPORT INFORMATION
  Report Type: 
  Country: None (occurrence: None)
  Receive Date: 20050121
  Receipt Date: 20050113
  Transmission Date: 20050727
  Serious: Yes (Hospitalization, Other)
  Sender: FDA-Public Use
  Company Number: US-BRISTOL-MYERS SQUIBB COMPANY-12828505

PATIENT
  Age: 70 Year
  Sex: Male

DRUGS (2)
  1. IRBESARTAN [Suspect]
     Route: 048
  2. LISINOPRIL [Suspect]
     Indication: HYPERTENSION
     Route: 048

REACTIONS (4)
  - HYPOTENSION [None]
  - PNEUMONIA LEGIONELLA [None]
  - RENAL FAILURE ACUTE [None]
  - TREATMENT NONCOMPLIANCE [None]
